FAERS Safety Report 15231918 (Version 1)
Quarter: 2018Q3

REPORT INFORMATION
  Report Type: Spontaneous
  Country: CA (occurrence: CA)
  Receive Date: 20180802
  Receipt Date: 20180802
  Transmission Date: 20181010
  Serious: Yes (Other)
  Sender: FDA-Public Use
  Company Number: CA-PFIZER INC-2018299466

PATIENT
  Sex: Female

DRUGS (1)
  1. PREMARIN [Suspect]
     Active Substance: ESTROGENS, CONJUGATED

REACTIONS (5)
  - Spinal fracture [Unknown]
  - Pain [Unknown]
  - Drug hypersensitivity [Unknown]
  - Hip fracture [Unknown]
  - Intentional product misuse [Unknown]
